FAERS Safety Report 24692725 (Version 1)
Quarter: 2024Q4

REPORT INFORMATION
  Report Type: Report from Study
  Country: US (occurrence: US)
  Receive Date: 20241203
  Receipt Date: 20241203
  Transmission Date: 20250115
  Serious: Yes (Other)
  Sender: AMGEN
  Company Number: US-AMGEN-USASL2024032773

PATIENT
  Age: 42 Year
  Sex: Male

DRUGS (1)
  1. LUMAKRAS [Suspect]
     Active Substance: SOTORASIB
     Indication: Product used for unknown indication
     Dosage: 960 MILLIGRAM, QD
     Route: 048

REACTIONS (4)
  - Neoplasm malignant [Unknown]
  - Thrombosis [Recovering/Resolving]
  - Haematochezia [Recovering/Resolving]
  - Internal haemorrhage [Recovering/Resolving]
